FAERS Safety Report 15790615 (Version 3)
Quarter: 2019Q1

REPORT INFORMATION
  Report Type: Report from Study
  Country: RU (occurrence: RU)
  Receive Date: 20190104
  Receipt Date: 20190201
  Transmission Date: 20190417
  Serious: Yes (Hospitalization)
  Sender: FDA-Public Use
  Company Number: RU-REGENERON PHARMACEUTICALS, INC.-2018-50843

PATIENT

DRUGS (4)
  1. CEMIPLIMAB [Suspect]
     Active Substance: CEMIPLIMAB
     Indication: LUNG ADENOCARCINOMA STAGE III
     Dosage: 350 MG, Q3W
     Route: 042
     Dates: start: 20181025, end: 20181115
  2. BISOPROLOL [Concomitant]
     Active Substance: BISOPROLOL
     Indication: SINUS TACHYCARDIA
     Dosage: 2.5 MG, QD
     Route: 048
     Dates: start: 20181205
  3. PREDNISOLONE. [Concomitant]
     Active Substance: PREDNISOLONE
     Indication: ANTI-TRANSGLUTAMINASE ANTIBODY DECREASED
     Dosage: 30 MG, QD
     Route: 048
     Dates: start: 20181205, end: 20190102
  4. IRON POLYMALTOSE [Concomitant]
     Active Substance: IRON POLYMALTOSE
     Indication: ANAEMIA
     Dosage: 1 TABLET TID
     Route: 048
     Dates: start: 20181008, end: 20190116

REACTIONS (1)
  - Hepatotoxicity [Recovered/Resolved]

NARRATIVE: CASE EVENT DATE: 20181228
